FAERS Safety Report 24093053 (Version 2)
Quarter: 2024Q3

REPORT INFORMATION
  Report Type: Spontaneous
  Country: IT (occurrence: IT)
  Receive Date: 20240715
  Receipt Date: 20240726
  Transmission Date: 20241016
  Serious: Yes (Death)
  Sender: NOVARTIS
  Company Number: None

PATIENT
  Age: 35 Year
  Sex: Female

DRUGS (2)
  1. TRAMETINIB [Suspect]
     Active Substance: TRAMETINIB
     Indication: Malignant melanoma
     Dosage: 1 MG, Q24H (TABLET) (AVVIO TERAPIA DABRAFENIB/TRAMETINIB 22/03/2024, PI? VOLTE SOSPESA TERAPIA PER E
     Route: 048
     Dates: start: 20240322
  2. DABRAFENIB [Suspect]
     Active Substance: DABRAFENIB
     Indication: Metastatic malignant melanoma
     Dosage: 75 MG, Q12H (TABLET) (TERAPIA PI? VOLTE SOSPESA TRANSITORIAMENTE E RIMODULATA. ULTIMA SOSPENSIONE IL
     Route: 048
     Dates: start: 20240322

REACTIONS (1)
  - Myocarditis [Fatal]

NARRATIVE: CASE EVENT DATE: 20240613
